FAERS Safety Report 14401190 (Version 4)
Quarter: 2021Q4

REPORT INFORMATION
  Report Type: Spontaneous
  Country: US (occurrence: US)
  Receive Date: 20180117
  Receipt Date: 20211103
  Transmission Date: 20220303
  Serious: Yes (Other)
  Sender: FDA-Public Use
  Company Number: US-PFIZER INC-2018020158

PATIENT
  Age: 67 Year
  Sex: Female
  Weight: 68.04 kg

DRUGS (8)
  1. XELJANZ XR [Suspect]
     Active Substance: TOFACITINIB CITRATE
     Indication: Rheumatoid arthritis
     Dosage: 11 MG, 1X/DAY
     Dates: start: 20160926
  2. XELJANZ XR [Suspect]
     Active Substance: TOFACITINIB CITRATE
     Dosage: 11 MG, 1X/DAY
     Route: 048
     Dates: start: 201710
  3. GABAPENTIN [Concomitant]
     Active Substance: GABAPENTIN
     Indication: Stress
     Dosage: 300 MG, 3X/DAY
     Route: 048
  4. GABAPENTIN [Concomitant]
     Active Substance: GABAPENTIN
     Indication: Neck pain
  5. METHOTREXATE [Concomitant]
     Active Substance: METHOTREXATE
     Indication: Rheumatoid arthritis
     Dosage: 10 MG, WEEKLY (2.5 MG TABLETS, 4 TABLETS PER WEEK; 2 TABLETS ON SATURDAY AND 2 TABLETS ON SUNDAY)
     Route: 048
  6. FOLIC ACID [Concomitant]
     Active Substance: FOLIC ACID
     Dosage: 1 MG, DAILY
  7. SYNTHROID [Concomitant]
     Active Substance: LEVOTHYROXINE SODIUM
     Indication: Prophylaxis
     Dosage: 88 UG, DAILY
     Route: 048
     Dates: start: 2010
  8. DEXILANT [Concomitant]
     Active Substance: DEXLANSOPRAZOLE
     Indication: Prophylaxis
     Dosage: 60 MG, DAILY

REACTIONS (6)
  - Dementia Alzheimer^s type [Unknown]
  - Therapeutic product effect incomplete [Unknown]
  - Arthralgia [Unknown]
  - Swelling [Unknown]
  - Blood glucose abnormal [Unknown]
  - Bone disorder [Unknown]
